FAERS Safety Report 7527518 (Version 4)
Quarter: 2015Q1

REPORT INFORMATION
  Report Type: Report from Study
  Country: FR (occurrence: FR)
  Receive Date: 20100804
  Receipt Date: 20150317
  Transmission Date: 20150721
  Serious: Yes (Hospitalization, Other)
  Sender: FDA-Public Use
  Company Number: PHHO2010FR11305

PATIENT
  Age: 60 Year
  Sex: Male
  Weight: 58 kg

DRUGS (11)
  1. MYCOPHENOLATE MOFETIL. [Suspect]
     Active Substance: MYCOPHENOLATE MOFETIL
     Indication: HEART TRANSPLANT
     Dosage: 750 MG, UNK
     Route: 048
     Dates: start: 20091229
  2. CORTANCYL [Concomitant]
     Active Substance: PREDNISONE
     Indication: PRODUCT USED FOR UNKNOWN INDICATION
     Route: 065
  3. ESOMEPRAZOLE [Concomitant]
     Active Substance: ESOMEPRAZOLE
     Indication: PRODUCT USED FOR UNKNOWN INDICATION
     Route: 065
  4. FORADIL [Concomitant]
     Active Substance: FORMOTEROL FUMARATE
     Indication: PRODUCT USED FOR UNKNOWN INDICATION
     Route: 065
  5. SPIRIVA [Concomitant]
     Active Substance: TIOTROPIUM BROMIDE MONOHYDRATE
     Indication: PRODUCT USED FOR UNKNOWN INDICATION
     Route: 065
  6. REVATIO [Concomitant]
     Active Substance: SILDENAFIL CITRATE
     Indication: PRODUCT USED FOR UNKNOWN INDICATION
     Route: 065
  7. APROVEL [Concomitant]
     Active Substance: IRBESARTAN
     Indication: PRODUCT USED FOR UNKNOWN INDICATION
     Route: 065
  8. NEORAL [Suspect]
     Active Substance: CYCLOSPORINE
     Indication: HEART TRANSPLANT
     Dosage: 75 MG, UNK
     Route: 048
     Dates: start: 20091229
  9. BROMAZEPAM [Concomitant]
     Active Substance: BROMAZEPAM
     Indication: PRODUCT USED FOR UNKNOWN INDICATION
     Route: 065
  10. MAGNE B6 [Concomitant]
     Active Substance: MAGNESIUM\PYRIDOXINE
     Indication: PRODUCT USED FOR UNKNOWN INDICATION
     Route: 065
  11. STILNOX [Concomitant]
     Active Substance: ZOLPIDEM TARTRATE
     Indication: PRODUCT USED FOR UNKNOWN INDICATION
     Route: 065

REACTIONS (27)
  - Biliary dilatation [Unknown]
  - Cholestasis [Unknown]
  - Emphysema [Unknown]
  - Peripheral artery stenosis [Unknown]
  - Hyperlipasaemia [Unknown]
  - Pancreatic carcinoma [Unknown]
  - Chest pain [Unknown]
  - Hyperthermia [Unknown]
  - Acute kidney injury [Unknown]
  - Hyponatraemia [Unknown]
  - Intermittent claudication [Unknown]
  - Pulmonary arterial hypertension [Unknown]
  - Pyrexia [Unknown]
  - Pancreatitis chronic [Recovered/Resolved]
  - Hyperamylasaemia [Unknown]
  - Malnutrition [Unknown]
  - Anaemia macrocytic [Unknown]
  - Amyotrophy [Unknown]
  - Pancreatitis acute [Recovered/Resolved]
  - Microlithiasis [Unknown]
  - Sepsis [Unknown]
  - Cholangitis [Unknown]
  - Cardiac failure [Unknown]
  - Right ventricular dysfunction [Unknown]
  - Oedema peripheral [Unknown]
  - Renal tubular necrosis [Unknown]
  - Blood alkaline phosphatase increased [Unknown]

NARRATIVE: CASE EVENT DATE: 20100602
